FAERS Safety Report 15657086 (Version 1)
Quarter: 2018Q4

REPORT INFORMATION
  Report Type: Spontaneous
  Country: US (occurrence: US)
  Receive Date: 20181126
  Receipt Date: 20181126
  Transmission Date: 20190205
  Serious: Yes (Other)
  Sender: FDA-Public Use
  Company Number: None

PATIENT
  Age: 40 Year
  Sex: Female

DRUGS (3)
  1. NALOXONE [Concomitant]
     Active Substance: NALOXONE
  2. SUBOXONE [Suspect]
     Active Substance: BUPRENORPHINE HYDROCHLORIDE\NALOXONE HYDROCHLORIDE
     Indication: DRUG DEPENDENCE
     Route: 048
     Dates: start: 20180607, end: 20181126
  3. BUPRENORPHINE. [Concomitant]
     Active Substance: BUPRENORPHINE

REACTIONS (7)
  - Skin laceration [None]
  - Drug level below therapeutic [None]
  - Victim of crime [None]
  - Drug dependence [None]
  - Therapeutic response decreased [None]
  - Drug ineffective [None]
  - Drug withdrawal syndrome [None]

NARRATIVE: CASE EVENT DATE: 20181126
